FAERS Safety Report 16887670 (Version 3)
Quarter: 2023Q1

REPORT INFORMATION
  Report Type: Spontaneous
  Country: SE (occurrence: SE)
  Receive Date: 20191005
  Receipt Date: 20230206
  Transmission Date: 20230417
  Serious: Yes (Hospitalization, Other)
  Sender: FDA-Public Use
  Company Number: SE-AUROBINDO-AUR-APL-2019-064081

PATIENT
  Sex: Female

DRUGS (11)
  1. LAMOTRIGINE [Suspect]
     Active Substance: LAMOTRIGINE
     Indication: Product used for unknown indication
     Dosage: 1 DOSAGE FORM, IN TOTAL (UNCLEAR AMOUNT)
     Route: 048
     Dates: start: 20181014, end: 20181014
  2. OLANZAPINE [Suspect]
     Active Substance: OLANZAPINE
     Indication: Product used for unknown indication
     Dosage: 5 MILLIGRAM 1 TOTAL (1 TR IN 5 MG)
     Route: 048
     Dates: start: 20181014, end: 20181014
  3. SERTRALINE [Suspect]
     Active Substance: SERTRALINE HYDROCHLORIDE
     Indication: Product used for unknown indication
     Dosage: 1 DOSAGE FORM, IN TOTAL (UNCLEAR AMOUNT)
     Route: 048
     Dates: start: 20181014, end: 20181014
  4. ZUCLOPENTHIXOL [Suspect]
     Active Substance: ZUCLOPENTHIXOL
     Indication: Product used for unknown indication
     Dosage: 1 DOSAGE FORM, IN TOTAL (UNCLEAR AMOUNT)
     Route: 048
     Dates: start: 20181014, end: 20181014
  5. TRIMEPRAZINE [Suspect]
     Active Substance: TRIMEPRAZINE
     Indication: Product used for unknown indication
     Dosage: 1 DOSAGE FORM, IN TOTAL (UNCLEAR AMOUNT)
     Route: 048
     Dates: start: 20181014, end: 20181014
  6. TRIHEXYPHENIDYL HYDROCHLORIDE [Suspect]
     Active Substance: TRIHEXYPHENIDYL HYDROCHLORIDE
     Indication: Product used for unknown indication
     Dosage: 1 DOSAGE FORM, IN TOTAL (UNCLEAR AMOUNT)
     Route: 048
     Dates: start: 20181014, end: 20181014
  7. PROMETHAZINE HYDROCHLORIDE\THIOUREA [Suspect]
     Active Substance: PROMETHAZINE HYDROCHLORIDE\THIOUREA
     Indication: Product used for unknown indication
     Dosage: 900 MILLIGRAM (1 TOTAL) (36 THE ALLERGY TO 25 MG)
     Route: 048
     Dates: start: 20181014, end: 20181014
  8. DIAZEPAM [Suspect]
     Active Substance: DIAZEPAM
     Indication: Product used for unknown indication
     Dosage: 80 MILLIGRAM (1 TOTAL) (4 STESOLID AT 20 MG)
     Route: 048
     Dates: start: 20181014, end: 20181014
  9. ARIPIPRAZOLE [Suspect]
     Active Substance: ARIPIPRAZOLE
     Indication: Product used for unknown indication
     Dosage: 1 DOSAGE FORM, IN TOTAL (UNCLEAR AMOUNT)
     Route: 048
     Dates: start: 20181014, end: 20181014
  10. NALTREXONE [Suspect]
     Active Substance: NALTREXONE
     Indication: Product used for unknown indication
     Dosage: 1 DOSAGE FORM, IN TOTAL (UNCLEAR AMOUNT)
     Route: 048
     Dates: start: 20181014, end: 20181014
  11. MELATONIN [Suspect]
     Active Substance: MELATONIN
     Indication: Product used for unknown indication
     Dosage: 1 DOSAGE FORM, IN TOTAL (UNCLEAR AMOUNT)
     Route: 048
     Dates: start: 20181014, end: 20181014

REACTIONS (4)
  - Intentional self-injury [Unknown]
  - Fatigue [Unknown]
  - Depressed level of consciousness [Unknown]
  - Intentional overdose [Unknown]

NARRATIVE: CASE EVENT DATE: 20181001
